FAERS Safety Report 10671425 (Version 3)
Quarter: 2015Q1

REPORT INFORMATION
  Report Type: Spontaneous
  Country: JP (occurrence: JP)
  Receive Date: 20141223
  Receipt Date: 20150223
  Transmission Date: 20150720
  Serious: No
  Sender: FDA-Public Use
  Company Number: JP-SUCAMPO AG-SPI201400678

PATIENT
  Age: 60 Year
  Sex: Female

DRUGS (6)
  1. GASMOTIN [Concomitant]
     Active Substance: MOSAPRIDE CITRATE
     Indication: ABDOMINAL PAIN UPPER
     Dosage: 25 MG, TID
     Dates: start: 20140920
  2. MAGLAX [Concomitant]
     Active Substance: MAGNESIUM OXIDE
     Indication: CONSTIPATION
     Dosage: 660 MG, TID
     Route: 048
     Dates: start: 20130920
  3. NEXIUM [Concomitant]
     Active Substance: ESOMEPRAZOLE MAGNESIUM
     Indication: ABDOMINAL PAIN UPPER
     Dosage: UNK
     Route: 048
     Dates: start: 20130920
  4. MUCOSTA [Concomitant]
     Active Substance: REBAMIPIDE
     Indication: ABDOMINAL PAIN UPPER
     Dosage: 100 MG, TID
     Dates: start: 20140920
  5. AMITIZA [Suspect]
     Active Substance: LUBIPROSTONE
     Indication: CONSTIPATION
     Dosage: 24 MCG, BID
     Route: 048
     Dates: start: 20140807, end: 20140810
  6. TS-1 [Concomitant]
     Active Substance: GIMERACIL\OTERACIL\TEGAFUR
     Indication: POSTOPERATIVE CARE
     Dosage: UNK
     Route: 048
     Dates: start: 20131011, end: 20141020

REACTIONS (4)
  - Drug interaction [None]
  - Palpitations [Recovered/Resolved]
  - Dyspnoea [Recovered/Resolved]
  - Nausea [Recovered/Resolved]

NARRATIVE: CASE EVENT DATE: 20140808
